FAERS Safety Report 10188910 (Version 1)
Quarter: 2014Q2

REPORT INFORMATION
  Report Type: Spontaneous
  Country: US (occurrence: US)
  Receive Date: 20140522
  Receipt Date: 20140522
  Transmission Date: 20141212
  Serious: No
  Sender: FDA-Public Use
  Company Number: US-ZOGENIX, INC.-2014ZX000098

PATIENT
  Sex: Male
  Weight: 81.72 kg

DRUGS (4)
  1. ZOHYDRO ER [Suspect]
     Indication: BACK PAIN
     Route: 048
  2. AMBIEN [Concomitant]
     Indication: SLEEP DISORDER
     Route: 048
  3. DIAZEPAM [Concomitant]
     Indication: ANXIETY
     Route: 048
  4. NEXIUM [Concomitant]
     Indication: GASTRIC DISORDER
     Route: 048

REACTIONS (3)
  - Influenza [Unknown]
  - Feeling abnormal [Unknown]
  - Therapeutic response decreased [Unknown]
